FAERS Safety Report 17526172 (Version 1)
Quarter: 2020Q1

REPORT INFORMATION
  Report Type: Spontaneous
  Country: US (occurrence: US)
  Receive Date: 20200311
  Receipt Date: 20200311
  Transmission Date: 20200409
  Serious: Yes (Hospitalization, Other)
  Sender: FDA-Public Use
  Company Number: US-LUPIN PHARMACEUTICALS INC.-2020-01201

PATIENT
  Age: 52 Year
  Sex: Male

DRUGS (1)
  1. CEPHALEXIN. [Suspect]
     Active Substance: CEPHALEXIN
     Indication: CELLULITIS
     Dosage: UNK
     Route: 065

REACTIONS (7)
  - Jarisch-Herxheimer reaction [Unknown]
  - Mania [Unknown]
  - Drug-disease interaction [None]
  - Psychotic disorder [Unknown]
  - Cognitive disorder [Unknown]
  - Behaviour disorder [Recovering/Resolving]
  - Mental status changes [Recovering/Resolving]
